FAERS Safety Report 17128643 (Version 6)
Quarter: 2020Q1

REPORT INFORMATION
  Report Type: Report from Study
  Country: FR (occurrence: FR)
  Receive Date: 20191209
  Receipt Date: 20200117
  Transmission Date: 20200409
  Serious: Yes (Hospitalization)
  Sender: FDA-Public Use
  Company Number: FR-EISAI MEDICAL RESEARCH-EC-2019-065609

PATIENT
  Age: 67 Year
  Sex: Male
  Weight: 70 kg

DRUGS (15)
  1. ALFUZOSIN [Concomitant]
     Active Substance: ALFUZOSIN
     Dates: start: 201401
  2. URSAPHARM HYLO CONFORT [Concomitant]
     Dates: start: 201801
  3. PEMBROLIZUMAB. [Suspect]
     Active Substance: PEMBROLIZUMAB
     Route: 041
     Dates: start: 20191211, end: 20191211
  4. LENVATINIB [Suspect]
     Active Substance: LENVATINIB
     Indication: HEPATOCELLULAR CARCINOMA
     Dosage: STARTING AT DOSE:12 MG, FLUCTUATED DOSES.
     Route: 048
     Dates: start: 20190516, end: 20191112
  5. LENVATINIB [Suspect]
     Active Substance: LENVATINIB
     Route: 048
     Dates: start: 20191226
  6. PEMBROLIZUMAB. [Suspect]
     Active Substance: PEMBROLIZUMAB
     Route: 041
     Dates: start: 20191030, end: 20191030
  7. PEMBROLIZUMAB. [Suspect]
     Active Substance: PEMBROLIZUMAB
     Indication: HEPATOCELLULAR CARCINOMA
     Route: 041
     Dates: start: 20190516, end: 20191009
  8. PEMBROLIZUMAB. [Suspect]
     Active Substance: PEMBROLIZUMAB
     Route: 041
     Dates: start: 20191230
  9. MONOPROST [Concomitant]
     Active Substance: LATANOPROST
     Dates: start: 201801
  10. LENVATINIB [Suspect]
     Active Substance: LENVATINIB
     Route: 048
     Dates: start: 20191119, end: 20191201
  11. LENVATINIB [Suspect]
     Active Substance: LENVATINIB
     Route: 048
     Dates: start: 20191113, end: 20191114
  12. PEMBROLIZUMAB. [Suspect]
     Active Substance: PEMBROLIZUMAB
     Route: 041
     Dates: start: 20191119, end: 20191119
  13. CANDESARTAN. [Concomitant]
     Active Substance: CANDESARTAN
     Dates: start: 201401, end: 20191115
  14. MAG 2 [Concomitant]
     Active Substance: MAGNESIUM
     Dates: start: 20190716
  15. SULFARLEM [Concomitant]
     Active Substance: ANETHOLTRITHION
     Dates: start: 20190917

REACTIONS (2)
  - General physical health deterioration [Recovered/Resolved]
  - Hypokalaemia [Recovered/Resolved]

NARRATIVE: CASE EVENT DATE: 20191114
